FAERS Safety Report 7680522-0 (Version None)
Quarter: 2011Q3

REPORT INFORMATION
  Report Type: 
  Country: None (occurrence: None)
  Receive Date: 20110812
  Receipt Date: 20110801
  Transmission Date: 20111222
  Serious: Yes (Hospitalization)
  Sender: FDA-Public Use
  Company Number: US-JNJFOC-20110410896

PATIENT
  Sex: Female
  Weight: 25 kg

DRUGS (4)
  1. PREDNISONE [Concomitant]
  2. REMICADE [Suspect]
     Indication: CROHN'S DISEASE
     Route: 042
     Dates: start: 20110120
  3. REMICADE [Suspect]
     Route: 042
     Dates: start: 20101209
  4. ANTIBIOTIC [Concomitant]

REACTIONS (2)
  - JEJUNAL STENOSIS [None]
  - GASTROENTERITIS [None]
